FAERS Safety Report 25420138 (Version 1)
Quarter: 2025Q2

REPORT INFORMATION
  Report Type: Spontaneous
  Country: BE (occurrence: BE)
  Receive Date: 20250610
  Receipt Date: 20250610
  Transmission Date: 20250716
  Serious: Yes (Disabling)
  Sender: SK LIFE SCIENCE
  Company Number: None

PATIENT

DRUGS (2)
  1. XCOPRI [Suspect]
     Active Substance: CENOBAMATE
     Indication: Partial seizures
     Dosage: POSOLOGIE EN MODE PROGRESSIVE TOUT EN DIMINUANT LE KEPPRA200 MG
     Route: 048
  2. KEPPRA [Suspect]
     Active Substance: LEVETIRACETAM
     Indication: Product used for unknown indication
     Route: 065

REACTIONS (5)
  - Enuresis [Recovered/Resolved]
  - Visual impairment [Not Recovered/Not Resolved]
  - Fatigue [Not Recovered/Not Resolved]
  - Dysarthria [Not Recovered/Not Resolved]
  - Somnolence [Not Recovered/Not Resolved]
